FAERS Safety Report 5883244-1 (Version None)
Quarter: 2008Q3

REPORT INFORMATION
  Report Type: 
  Country: None (occurrence: None)
  Receive Date: 20080915
  Receipt Date: 20080905
  Transmission Date: 20090109
  Serious: Yes (Other)
  Sender: FDA-Public Use
  Company Number: US-JNJFOC-20080902083

PATIENT
  Sex: Male
  Weight: 81.65 kg

DRUGS (8)
  1. LEVAQUIN [Suspect]
     Indication: OROPHARYNGEAL PAIN
     Route: 048
  2. COZAAR [Concomitant]
     Indication: BLOOD PRESSURE
     Route: 048
  3. METOPROTOL [Concomitant]
     Indication: BLOOD PRESSURE
     Route: 048
  4. WARFARIN SODIUM [Concomitant]
     Indication: ANTICOAGULANT THERAPY
     Route: 048
  5. LIPITOR [Concomitant]
     Indication: BLOOD CHOLESTEROL
     Route: 048
  6. DIAMOX [Concomitant]
     Route: 048
  7. RAMIPRIL [Concomitant]
     Route: 048
  8. GABAPENTIN [Concomitant]
     Route: 048

REACTIONS (5)
  - FINGER DEFORMITY [None]
  - MOVEMENT DISORDER [None]
  - MUSCULOSKELETAL STIFFNESS [None]
  - PAIN IN EXTREMITY [None]
  - TENDON INJURY [None]
